FAERS Safety Report 10189427 (Version 3)
Quarter: 2014Q2

REPORT INFORMATION
  Report Type: Spontaneous
  Country: US (occurrence: US)
  Receive Date: 20140522
  Receipt Date: 20140522
  Transmission Date: 20141212
  Serious: No
  Sender: FDA-Public Use
  Company Number: US-ASTRAZENECA-2013SE59333

PATIENT
  Age: 796 Month
  Sex: Male
  Weight: 81.6 kg

DRUGS (7)
  1. PULMICORT FLEXHALER [Suspect]
     Indication: PNEUMONIA
     Route: 055
     Dates: start: 20130702
  2. VENTOLIN HFA [Concomitant]
  3. METFORMIN [Concomitant]
  4. GLABURIDE [Concomitant]
  5. NORVASC [Concomitant]
     Dosage: NORVASC
  6. NORVASC [Concomitant]
     Dosage: LODIPINE
  7. AZITHROMYCIN [Concomitant]

REACTIONS (4)
  - Buccal mucosal roughening [Not Recovered/Not Resolved]
  - Asthenia [Not Recovered/Not Resolved]
  - Hypophagia [Not Recovered/Not Resolved]
  - Circumstance or information capable of leading to medication error [Unknown]
